FAERS Safety Report 16061849 (Version 1)
Quarter: 2019Q1

REPORT INFORMATION
  Report Type: Report from Study
  Country: US (occurrence: US)
  Receive Date: 20190312
  Receipt Date: 20190312
  Transmission Date: 20190418
  Serious: Yes (Hospitalization, Other)
  Sender: FDA-Public Use
  Company Number: US-GILEAD-2019-0395754

PATIENT
  Age: 72 Year
  Sex: Female

DRUGS (26)
  1. ALBUTEROL HFA [Concomitant]
     Active Substance: ALBUTEROL SULFATE
  2. FUROSEMIDE. [Concomitant]
     Active Substance: FUROSEMIDE
  3. SINGULAIR [Concomitant]
     Active Substance: MONTELUKAST SODIUM
  4. ASPIRIN (E.C.) [Concomitant]
     Active Substance: ASPIRIN
  5. ABILIFY [Concomitant]
     Active Substance: ARIPIPRAZOLE
  6. DULOXETINE. [Concomitant]
     Active Substance: DULOXETINE
  7. PANTOPRAZOLE [Concomitant]
     Active Substance: PANTOPRAZOLE
  8. ZETIA [Concomitant]
     Active Substance: EZETIMIBE
  9. MULTI VIT [Concomitant]
     Active Substance: VITAMINS
  10. LORAZEPAM. [Concomitant]
     Active Substance: LORAZEPAM
  11. ACIDOPHILUS BIFIDUS [Concomitant]
  12. VENTOLIN COMPUESTO [Concomitant]
  13. VITAMIN D [Concomitant]
     Active Substance: CHOLECALCIFEROL
  14. POTASSIUM [Concomitant]
     Active Substance: POTASSIUM
  15. NASONEX [Concomitant]
     Active Substance: MOMETASONE FUROATE
  16. METOPROL XL [Concomitant]
  17. ADVAIR HFA [Concomitant]
     Active Substance: FLUTICASONE PROPIONATE\SALMETEROL XINAFOATE
  18. GABAPENTIN. [Concomitant]
     Active Substance: GABAPENTIN
  19. WARFARIN [Concomitant]
     Active Substance: WARFARIN
  20. VITAMIN D3 [Concomitant]
     Active Substance: CHOLECALCIFEROL
  21. COLCRYS [Concomitant]
     Active Substance: COLCHICINE
  22. CALCIUM [Concomitant]
     Active Substance: CALCIUM
  23. AMBRISENTAN [Suspect]
     Active Substance: AMBRISENTAN
     Indication: PULMONARY HYPERTENSION
     Dosage: 10 MG, QD
     Route: 065
     Dates: start: 20110817
  24. ALLEGRA [Concomitant]
     Active Substance: FEXOFENADINE HYDROCHLORIDE
  25. CYMBALTA [Concomitant]
     Active Substance: DULOXETINE HYDROCHLORIDE
  26. DUONEB [Concomitant]
     Active Substance: ALBUTEROL SULFATE\IPRATROPIUM BROMIDE

REACTIONS (1)
  - Cardiac failure congestive [Not Recovered/Not Resolved]

NARRATIVE: CASE EVENT DATE: 20190205
